FAERS Safety Report 24710279 (Version 5)
Quarter: 2025Q2

REPORT INFORMATION
  Report Type: Report from Study
  Country: US (occurrence: US)
  Receive Date: 20241209
  Receipt Date: 20250410
  Transmission Date: 20250716
  Serious: Yes (Other)
  Sender: UCB
  Company Number: US-UCBSA-2024063247

PATIENT
  Sex: Male

DRUGS (1)
  1. BIMEKIZUMAB [Suspect]
     Active Substance: BIMEKIZUMAB
     Indication: Psoriasis
     Dosage: 320 MILLIGRAM, EV 4 WEEKS
     Route: 058
     Dates: start: 20241010

REACTIONS (10)
  - Pneumonia [Recovered/Resolved]
  - Type 2 diabetes mellitus [Recovered/Resolved]
  - Surgery [Not Recovered/Not Resolved]
  - Lymphoedema [Not Recovered/Not Resolved]
  - Drug specific antibody present [Not Recovered/Not Resolved]
  - Psoriasis [Not Recovered/Not Resolved]
  - Streptococcal infection [Recovered/Resolved]
  - Weight increased [Not Recovered/Not Resolved]
  - Intentional dose omission [Unknown]
  - Postoperative wound infection [Recovered/Resolved]

NARRATIVE: CASE EVENT DATE: 20240101
